FAERS Safety Report 7238513-X (Version None)
Quarter: 2011Q1

REPORT INFORMATION
  Report Type: 
  Country: None (occurrence: None)
  Receive Date: 20110121
  Receipt Date: 20110119
  Transmission Date: 20110831
  Serious: No
  Sender: FDA-Public Use
  Company Number: US-JNJFOC-20101204049

PATIENT
  Sex: Male
  Weight: 70.31 kg

DRUGS (28)
  1. IMDUR [Concomitant]
     Indication: CARDIAC DISORDER
     Route: 048
  2. ZINC [Concomitant]
     Indication: NUTRITIONAL SUPPORT
     Route: 048
  3. BUMEX [Concomitant]
     Indication: DIURETIC THERAPY
     Route: 048
  4. COUMADIN [Concomitant]
     Indication: ANTICOAGULANT THERAPY
     Route: 048
  5. FERROUS SULFATE [Concomitant]
     Indication: NUTRITIONAL SUPPORT
     Route: 048
  6. ASCORBIC ACID [Concomitant]
     Indication: NUTRITIONAL SUPPORT
     Route: 048
  7. BUMEX [Concomitant]
     Route: 048
  8. FENTANYL-100 [Suspect]
     Indication: MUSCULOSKELETAL PAIN
     Route: 062
  9. VERAPAMIL [Concomitant]
     Indication: CARDIAC DISORDER
     Route: 048
  10. ASPIRIN [Concomitant]
     Indication: ANTICOAGULANT THERAPY
     Route: 048
  11. NIACIN [Concomitant]
     Indication: NUTRITIONAL SUPPORT
     Route: 048
  12. ALLOPURINOL [Concomitant]
     Indication: GOUT
     Route: 048
  13. PRILOSEC [Concomitant]
     Indication: ILL-DEFINED DISORDER
     Route: 048
  14. BENICAR [Concomitant]
     Indication: CARDIAC DISORDER
     Route: 048
  15. COUMADIN [Concomitant]
     Route: 048
  16. EPOETIN ALFA [Concomitant]
     Indication: NEPHROPATHY
     Route: 058
  17. CARDURA [Concomitant]
     Indication: CARDIAC DISORDER
     Route: 048
  18. LOVAZA [Concomitant]
     Indication: NUTRITIONAL SUPPORT
     Route: 048
  19. HYDRALAZINE [Concomitant]
     Indication: NEPHROPATHY
     Route: 048
  20. MELATONIN [Concomitant]
     Indication: SLEEP DISORDER
     Route: 048
  21. ATROVENT [Concomitant]
     Indication: CHRONIC OBSTRUCTIVE PULMONARY DISEASE
     Route: 055
  22. XOPENEX [Concomitant]
     Indication: CHRONIC OBSTRUCTIVE PULMONARY DISEASE
     Route: 055
  23. FLOVENT [Concomitant]
     Indication: CHRONIC OBSTRUCTIVE PULMONARY DISEASE
     Route: 055
  24. SYNTHROID [Concomitant]
     Indication: HYPOTHYROIDISM
     Route: 048
  25. COD LIVER OIL [Concomitant]
     Indication: PSORIASIS
     Route: 048
  26. PRESERVISION LUTEIN EYE VITA.+MIN.SUP.SOFTG. [Concomitant]
     Indication: NUTRITIONAL SUPPORT
     Route: 048
  27. MULTAQ [Concomitant]
     Indication: ATRIAL FIBRILLATION
     Route: 048
  28. VITAMINE E [Concomitant]
     Indication: SKIN DISORDER
     Route: 048

REACTIONS (4)
  - WRONG TECHNIQUE IN DRUG USAGE PROCESS [None]
  - APPLICATION SITE IRRITATION [None]
  - PRODUCT QUALITY ISSUE [None]
  - APPLICATION SITE PAIN [None]
